FAERS Safety Report 9542768 (Version 4)
Quarter: 2014Q2

REPORT INFORMATION
  Report Type: Spontaneous
  Country: US (occurrence: US)
  Receive Date: 20130923
  Receipt Date: 20140414
  Transmission Date: 20141212
  Serious: No
  Sender: FDA-Public Use
  Company Number: US-PFIZER INC-2013273048

PATIENT
  Age: 40 Year
  Sex: Female
  Weight: 79 kg

DRUGS (8)
  1. LYRICA [Suspect]
     Indication: FIBROMYALGIA
     Dosage: 75 MG, 3X/DAY
     Route: 048
     Dates: start: 201208, end: 201208
  2. LYRICA [Suspect]
     Indication: NEURALGIA
     Dosage: 150 MG, 2X/DAY
     Route: 048
     Dates: start: 201208, end: 201208
  3. LYRICA [Suspect]
     Dosage: 150 MG, 2X/DAY
     Route: 048
     Dates: start: 201208, end: 201208
  4. LYRICA [Suspect]
     Dosage: 150 MG, 3X/DAY
     Route: 048
     Dates: start: 201208, end: 2013
  5. LYRICA [Suspect]
     Dosage: 150 MG, 3X/DAY
     Route: 048
     Dates: start: 2013, end: 20130914
  6. LYRICA [Suspect]
     Dosage: 150 MG, 3X/DAY
     Route: 047
     Dates: start: 20130920
  7. VENTOLIN [Concomitant]
     Dosage: UNK
  8. SUBUTEX [Concomitant]
     Dosage: UNK

REACTIONS (16)
  - Nasopharyngitis [Unknown]
  - Cough [Unknown]
  - Weight decreased [Unknown]
  - Malaise [Unknown]
  - Decreased appetite [Unknown]
  - Weight increased [Unknown]
  - Thirst [Unknown]
  - Dry mouth [Unknown]
  - Feeling abnormal [Unknown]
  - Drug withdrawal syndrome [Unknown]
  - Pain [Unknown]
  - Hypertension [Unknown]
  - Malaise [Unknown]
  - Eye disorder [Unknown]
  - Vision blurred [Unknown]
  - Eye pain [Unknown]
